FAERS Safety Report 7312875-7 (Version None)
Quarter: 2011Q1

REPORT INFORMATION
  Report Type: 
  Country: None (occurrence: None)
  Receive Date: 20110224
  Receipt Date: 20110216
  Transmission Date: 20110831
  Serious: No
  Sender: FDA-Public Use
  Company Number: IT-BAXTER-2011BH000727

PATIENT
  Age: 58 Year
  Sex: Male

DRUGS (4)
  1. DIANEAL [Suspect]
     Route: 033
     Dates: start: 20101020, end: 20110129
  2. DIANEAL [Suspect]
     Indication: PERITONEAL DIALYSIS
     Route: 033
     Dates: start: 20110104, end: 20110104
  3. DIANEAL [Suspect]
     Route: 033
     Dates: start: 20101020, end: 20110129
  4. DIANEAL [Suspect]
     Route: 033
     Dates: start: 20110104, end: 20110104

REACTIONS (5)
  - ABDOMINAL PAIN [None]
  - VOMITING [None]
  - CHILLS [None]
  - NAUSEA [None]
  - PYREXIA [None]
